FAERS Safety Report 24569918 (Version 1)
Quarter: 2024Q4

REPORT INFORMATION
  Report Type: Spontaneous
  Country: CN (occurrence: CN)
  Receive Date: 20241031
  Receipt Date: 20241031
  Transmission Date: 20250114
  Serious: Yes (Hospitalization)
  Sender: NOVARTIS
  Company Number: CN-002147023-NVSC2024CN210293

PATIENT
  Age: 73 Year
  Sex: Female

DRUGS (9)
  1. SACUBITRIL\VALSARTAN [Suspect]
     Active Substance: SACUBITRIL\VALSARTAN
     Indication: Cardiac failure
     Dosage: 100 MG, BID
     Route: 048
     Dates: start: 20241011, end: 20241015
  2. SACUBITRIL\VALSARTAN [Suspect]
     Active Substance: SACUBITRIL\VALSARTAN
     Indication: Cardiac failure
  3. SACUBITRIL\VALSARTAN [Suspect]
     Active Substance: SACUBITRIL\VALSARTAN
     Indication: Ejection fraction decreased
  4. DIGOXIN [Suspect]
     Active Substance: DIGOXIN
     Indication: Cardiac failure
     Dosage: UNK
     Route: 065
  5. DIGOXIN [Suspect]
     Active Substance: DIGOXIN
     Indication: Cardiac failure
  6. DIGOXIN [Suspect]
     Active Substance: DIGOXIN
     Indication: Ejection fraction decreased
  7. ALDOSTERONE [Suspect]
     Active Substance: ALDOSTERONE
     Indication: Cardiac failure
     Dosage: UNK (RECEPTOR ANTAGONIST)
     Route: 065
  8. ALDOSTERONE [Suspect]
     Active Substance: ALDOSTERONE
     Indication: Cardiac failure
  9. ALDOSTERONE [Suspect]
     Active Substance: ALDOSTERONE
     Indication: Ejection fraction decreased

REACTIONS (1)
  - Renal impairment [Recovering/Resolving]

NARRATIVE: CASE EVENT DATE: 20241015
